FAERS Safety Report 22953056 (Version 2)
Quarter: 2023Q4

REPORT INFORMATION
  Report Type: Report from Study
  Country: AR (occurrence: AR)
  Receive Date: 20230918
  Receipt Date: 20231112
  Transmission Date: 20240110
  Serious: Yes (Other)
  Sender: FDA-Public Use
  Company Number: AR-002147023-NVSC2022AR219114

PATIENT
  Age: 54 Year
  Sex: Female

DRUGS (2)
  1. KISQALI [Suspect]
     Active Substance: RIBOCICLIB
     Indication: Breast cancer metastatic
     Dosage: 600 MG, QD
     Route: 048
     Dates: start: 20220831
  2. KISQALI [Suspect]
     Active Substance: RIBOCICLIB
     Dosage: 200 MG, TID
     Route: 048
     Dates: start: 20220831

REACTIONS (25)
  - Hepatic neoplasm [Unknown]
  - Metastases to liver [Unknown]
  - Spinal fracture [Unknown]
  - Pathological fracture [Unknown]
  - Spinal column injury [Unknown]
  - Rib fracture [Unknown]
  - Mobility decreased [Unknown]
  - Bone lesion [Not Recovered/Not Resolved]
  - Gait inability [Unknown]
  - Osteolysis [Unknown]
  - Headache [Unknown]
  - Musculoskeletal chest pain [Unknown]
  - Bone disorder [Unknown]
  - Pain [Unknown]
  - Skin lesion [Unknown]
  - Laboratory test abnormal [Unknown]
  - Inappropriate schedule of product administration [Unknown]
  - Onychoclasis [Unknown]
  - Malaise [Unknown]
  - Alopecia [Not Recovered/Not Resolved]
  - Bronchitis [Unknown]
  - Haemoglobin decreased [Unknown]
  - Arthralgia [Unknown]
  - Bone pain [Unknown]
  - Balance disorder [Unknown]

NARRATIVE: CASE EVENT DATE: 20220901
